FAERS Safety Report 7510169-8 (Version None)
Quarter: 2011Q2

REPORT INFORMATION
  Report Type: 
  Country: None (occurrence: None)
  Receive Date: 20110527
  Receipt Date: 20110518
  Transmission Date: 20111010
  Serious: Yes (Hospitalization)
  Sender: FDA-Public Use
  Company Number: AT-ASTRAZENECA-2011SE30704

PATIENT
  Age: 39 Year
  Sex: Male
  Weight: 121.2 kg

DRUGS (14)
  1. SEROQUEL [Suspect]
     Route: 048
     Dates: start: 20110301, end: 20110316
  2. SEROQUEL [Suspect]
     Route: 048
     Dates: start: 20110319, end: 20110319
  3. SEROQUEL [Suspect]
     Route: 048
     Dates: start: 20110409
  4. LAMICTAL [Concomitant]
     Dates: start: 20110319, end: 20110330
  5. PARACODIN BITARTRATE TAB [Concomitant]
     Dates: start: 20110321, end: 20110321
  6. SEROQUEL [Suspect]
     Route: 048
     Dates: start: 20110320, end: 20110322
  7. PARACODIN BITARTRATE TAB [Concomitant]
     Dates: start: 20110316, end: 20110320
  8. SEROQUEL [Suspect]
     Route: 048
     Dates: start: 20110323, end: 20110408
  9. SEROQUEL [Suspect]
     Route: 048
     Dates: start: 20110317, end: 20110318
  10. CYMBALTA [Suspect]
     Dates: start: 20110101, end: 20110318
  11. LAMICTAL [Concomitant]
     Dates: start: 20110331
  12. INDERAL [Concomitant]
  13. LAMICTAL [Concomitant]
     Dates: start: 20110201, end: 20110318
  14. CANDESARTAN CILEXETIL [Concomitant]

REACTIONS (4)
  - HEPATIC ENZYME INCREASED [None]
  - DYSPHAGIA [None]
  - THROAT TIGHTNESS [None]
  - DYSPNOEA [None]
